FAERS Safety Report 10169959 (Version 2)
Quarter: 2014Q2

REPORT INFORMATION
  Report Type: Spontaneous
  Country: CA (occurrence: CA)
  Receive Date: 20140513
  Receipt Date: 20140520
  Transmission Date: 20141212
  Serious: Yes (Other)
  Sender: FDA-Public Use
  Company Number: CA-B.I. PHARMACEUTICALS,INC./RIDGEFIELD-2014-BI-20966CN

PATIENT
  Age: 82 Year
  Sex: Male

DRUGS (2)
  1. PRADAXA [Suspect]
     Indication: ATRIAL FIBRILLATION
     Route: 065
  2. HEPARIN [Concomitant]
     Route: 065

REACTIONS (4)
  - Bladder cancer [Unknown]
  - Surgery [Unknown]
  - Procedural haemorrhage [Unknown]
  - Urinary bladder haemorrhage [Unknown]
